FAERS Safety Report 5224148-7 (Version None)
Quarter: 2007Q1

REPORT INFORMATION
  Report Type: 
  Country: None (occurrence: None)
  Receive Date: 20070130
  Receipt Date: 20070118
  Transmission Date: 20070707
  Serious: Yes (Hospitalization)
  Sender: FDA-Public Use
  Company Number: US-SANOFI-SYNTHELABO-A03200700568

PATIENT
  Sex: Female
  Weight: 9037 kg

DRUGS (11)
  1. PLAVIX [Suspect]
     Indication: STENT PLACEMENT
     Route: 048
     Dates: start: 20050901, end: 20061207
  2. ZETIA [Concomitant]
     Dosage: 10 MG (1/2 TABLET) ONCE DAILY
     Route: 048
     Dates: start: 20060801
  3. LEVOTHYROXINE SODIUM [Concomitant]
     Route: 048
     Dates: start: 20040101
  4. LIPITOR [Concomitant]
     Route: 048
     Dates: start: 20010101
  5. INDERAL [Concomitant]
     Dosage: UNK
     Route: 048
     Dates: end: 20061117
  6. INDERAL [Concomitant]
     Route: 048
     Dates: start: 20061213
  7. CARDIZEM [Concomitant]
     Dosage: UNK
     Route: 048
     Dates: end: 20061117
  8. ATENOLOL [Suspect]
     Route: 048
     Dates: start: 20061117, end: 20061123
  9. ATENOLOL [Suspect]
     Route: 048
     Dates: start: 20061123, end: 20061213
  10. ASPIRIN [Concomitant]
     Route: 048
     Dates: start: 20050201, end: 20060101
  11. ASPIRIN [Concomitant]
     Route: 048
     Dates: start: 20060101

REACTIONS (5)
  - BRADYCARDIA [None]
  - DEEP VEIN THROMBOSIS [None]
  - DYSPNOEA [None]
  - LETHARGY [None]
  - PHLEBITIS [None]
